FAERS Safety Report 5010589-X (Version None)
Quarter: 2006Q2

REPORT INFORMATION
  Report Type: 
  Country: None (occurrence: None)
  Receive Date: 20060524
  Receipt Date: 20060524
  Transmission Date: 20061013
  Serious: Yes (Death, Life-Threatening, Hospitalization)
  Sender: FDA-Public Use
  Company Number: None

PATIENT
  Age: 66 Year
  Sex: Male
  Weight: 74.3899 kg

DRUGS (1)
  1. AMIODARONE  300 MG  WYETH [Suspect]
     Indication: ATRIAL FIBRILLATION
     Dosage: 300 MG DAILY PO
     Route: 048
     Dates: start: 19940101, end: 20060322

REACTIONS (7)
  - ATRIAL FIBRILLATION [None]
  - CONDITION AGGRAVATED [None]
  - DIFFUSE ALVEOLAR DAMAGE [None]
  - OXYGEN SATURATION DECREASED [None]
  - PULMONARY TOXICITY [None]
  - RESPIRATORY FAILURE [None]
  - THERAPY NON-RESPONDER [None]
